FAERS Safety Report 9945778 (Version 1)
Quarter: 2014Q1

REPORT INFORMATION
  Report Type: Spontaneous
  Country: US (occurrence: US)
  Receive Date: 20140303
  Receipt Date: 20140303
  Transmission Date: 20141002
  Serious: No
  Sender: FDA-Public Use
  Company Number: US-AMGEN-USASP2013069220

PATIENT
  Sex: Female
  Weight: 90.7 kg

DRUGS (6)
  1. ENBREL [Suspect]
     Indication: RHEUMATOID ARTHRITIS
     Dosage: 50 MG, QWK
     Route: 058
  2. ARAVA [Concomitant]
     Dosage: 10 MG, UNK
  3. OMEPRAZOLE [Concomitant]
     Dosage: 20 MG, UNK
  4. HYDROXYCHLOROQUINE [Concomitant]
     Dosage: 200 MG, UNK
  5. FOLIC ACID [Concomitant]
     Dosage: UNK
  6. TYLENOL                            /00020001/ [Concomitant]
     Dosage: 500 MG, UNK

REACTIONS (3)
  - Musculoskeletal stiffness [Unknown]
  - Pain in extremity [Unknown]
  - Arthralgia [Unknown]
